FAERS Safety Report 8078638-2 (Version None)
Quarter: 2012Q1

REPORT INFORMATION
  Report Type: 
  Country: None (occurrence: None)
  Receive Date: 20120124
  Receipt Date: 20120112
  Transmission Date: 20120608
  Serious: Yes (Death, Other)
  Sender: FDA-Public Use
  Company Number: KAD201201-000029

PATIENT
  Age: 54 Year
  Sex: Male

DRUGS (5)
  1. ARTERENOL (NOREPINEPHRINE) [Suspect]
  2. PROPOFOL [Suspect]
  3. ZYVOX [Suspect]
     Dosage: 600 MG TWO TIMES A DAY FOR 6 DAYS
  4. AMPHOTERICIN B [Suspect]
     Indication: GASTROINTESTINAL FUNGAL INFECTION
     Dosage: 250 MG, INTRAVENOUS
     Route: 042
     Dates: start: 20111021, end: 20111030
  5. DORIBAX [Suspect]
     Dosage: 1000 MG THREE TIMES A DAY FOR 6

REACTIONS (7)
  - STAPHYLOCOCCUS TEST POSITIVE [None]
  - FUNGAL TEST POSITIVE [None]
  - MULTI-ORGAN FAILURE [None]
  - PNEUMONIA [None]
  - CHILLS [None]
  - ASPARTATE AMINOTRANSFERASE INCREASED [None]
  - ALANINE AMINOTRANSFERASE INCREASED [None]
